FAERS Safety Report 4620441-7 (Version None)
Quarter: 2005Q1

REPORT INFORMATION
  Report Type: 
  Country: None (occurrence: None)
  Receive Date: 20050324
  Receipt Date: 20050314
  Transmission Date: 20050727
  Serious: Yes (Hospitalization)
  Sender: FDA-Public Use
  Company Number: 2005-00505

PATIENT
  Age: 82 Year
  Sex: Female
  Weight: 49.9 kg

DRUGS (3)
  1. VELCADE [Suspect]
     Indication: MULTIPLE MYELOMA
     Dosage: 1.30 MG/M2, IV BOLUS
     Route: 040
  2. COZAAR [Concomitant]
  3. LASIX [Concomitant]

REACTIONS (3)
  - APATHY [None]
  - HYPONATRAEMIA [None]
  - LETHARGY [None]
